FAERS Safety Report 9467014 (Version 2)
Quarter: 2013Q4

REPORT INFORMATION
  Report Type: Spontaneous
  Country: US (occurrence: US)
  Receive Date: 20130820
  Receipt Date: 20131022
  Transmission Date: 20140711
  Serious: Yes (Other)
  Sender: FDA-Public Use
  Company Number: US-GLAXOSMITHKLINE-A1037495A

PATIENT
  Age: 67 Year
  Sex: Female

DRUGS (11)
  1. ADVAIR [Suspect]
     Indication: CHRONIC OBSTRUCTIVE PULMONARY DISEASE
     Dosage: 1PUFF TWICE PER DAY
     Route: 055
     Dates: start: 200405
  2. ADVAIR [Suspect]
     Indication: CHRONIC OBSTRUCTIVE PULMONARY DISEASE
     Route: 055
     Dates: start: 20050202
  3. VENTOLIN [Suspect]
     Indication: CHRONIC OBSTRUCTIVE PULMONARY DISEASE
     Route: 055
  4. SPIRIVA [Concomitant]
  5. B12 [Concomitant]
  6. VENLAFAXINE [Concomitant]
  7. ZANTAC [Concomitant]
  8. SIMVASTATIN [Concomitant]
  9. ALBUTEROL NEBULIZER [Concomitant]
  10. VITAMINS [Concomitant]
  11. ASPIRIN [Concomitant]

REACTIONS (4)
  - Candida infection [Recovered/Resolved]
  - Laryngitis [Recovered/Resolved]
  - Laryngeal erythema [Recovered/Resolved]
  - Gastrooesophageal reflux disease [Recovered/Resolved]
